FAERS Safety Report 11373372 (Version 1)
Quarter: 2015Q3

REPORT INFORMATION
  Report Type: Spontaneous
  Country: US (occurrence: US)
  Receive Date: 20150811
  Receipt Date: 20150811
  Transmission Date: 20151125
  Serious: No
  Sender: FDA-Public Use
  Company Number: US-ELI_LILLY_AND_COMPANY-US201208005135

PATIENT
  Sex: Male
  Weight: 77.1 kg

DRUGS (1)
  1. CIALIS [Suspect]
     Active Substance: TADALAFIL
     Indication: ERECTILE DYSFUNCTION
     Dosage: 20 MG, PRN
     Dates: start: 20120710, end: 20120801

REACTIONS (3)
  - Ocular hyperaemia [Unknown]
  - Therapeutic response decreased [Unknown]
  - Flushing [Unknown]
